FAERS Safety Report 4547788-7 (Version None)
Quarter: 2004Q4

REPORT INFORMATION
  Report Type: 
  Country: None (occurrence: None)
  Receive Date: 20041223
  Receipt Date: 20041019
  Transmission Date: 20050328
  Serious: No
  Sender: FDA-Public Use
  Company Number: US-JNJFOC-20041006405

PATIENT
  Age: 40 Year
  Sex: Female
  Weight: 68.0396 kg

DRUGS (4)
  1. ORTHO EVRA [Suspect]
     Indication: CONTRACEPTION
     Dosage: 1 DOSE(S), 3 IN 4 WEEK, TRANSDERMAL
     Route: 062
  2. OXYCODONE (OXYCODONE) [Concomitant]
  3. HYDROMORPHINE (HYDROMORPHONE) [Concomitant]
  4. ALPRAZOLAM [Concomitant]

REACTIONS (1)
  - HAEMORRHAGE [None]
